FAERS Safety Report 6476431-5 (Version None)
Quarter: 2009Q4

REPORT INFORMATION
  Report Type: 
  Country: None (occurrence: None)
  Receive Date: 20091207
  Receipt Date: 20091125
  Transmission Date: 20100525
  Serious: Yes (Other)
  Sender: FDA-Public Use
  Company Number: CA-BIOGENIDEC-2009BI039118

PATIENT
  Age: 44 Year
  Sex: Male

DRUGS (2)
  1. TYSABRI [Suspect]
     Indication: MULTIPLE SCLEROSIS
     Route: 042
     Dates: start: 20081210
  2. TYSABRI [Suspect]
     Route: 042
     Dates: start: 20081210

REACTIONS (3)
  - CONVULSION [None]
  - MIGRAINE [None]
  - PAIN IN EXTREMITY [None]
